FAERS Safety Report 7121586-2 (Version None)
Quarter: 2010Q4

REPORT INFORMATION
  Report Type: 
  Country: None (occurrence: None)
  Receive Date: 20101124
  Receipt Date: 20101110
  Transmission Date: 20110411
  Serious: Yes (Hospitalization)
  Sender: FDA-Public Use
  Company Number: US-ELI_LILLY_AND_COMPANY-US201011003388

PATIENT
  Sex: Female

DRUGS (15)
  1. FORTEO [Suspect]
     Indication: OSTEOPOROSIS
     Dosage: 20 UG, DAILY (1/D)
  2. PERCOCET [Concomitant]
     Dosage: 10 MG, EVERY 4 HRS
  3. MAALOX [Concomitant]
     Dosage: UNK, DAILY (1/D)
  4. PRILOSEC [Concomitant]
     Dosage: 20 MG, DAILY (1/D)
  5. METHADONE [Concomitant]
     Dosage: 10 MG, 4/D
  6. ZESTRIL [Concomitant]
     Dosage: 10 MG, DAILY (1/D)
  7. PROZAC [Concomitant]
     Dosage: 20 MG, DAILY (1/D)
  8. PROZAC [Concomitant]
     Dosage: 40 MG, DAILY (1/D)
  9. XANAX [Concomitant]
     Dosage: 0.5 MG, 2/D
  10. XANAX [Concomitant]
     Dosage: 0.5 MG, 2/D
  11. FLEXERIL [Concomitant]
     Dosage: 1 MG, 3/D
  12. MYSOLINE [Concomitant]
     Indication: TREMOR
     Dosage: 50 MG, EACH EVENING
  13. LIPITOR [Concomitant]
     Dosage: 80 MG, DAILY (1/D)
  14. AMBIEN [Concomitant]
     Dosage: 10 MG, EACH EVENING
  15. LASIX [Concomitant]
     Indication: OEDEMA
     Dosage: 20 MG, UNK

REACTIONS (3)
  - HIP ARTHROPLASTY [None]
  - MACULAR DEGENERATION [None]
  - SCOLIOSIS [None]
